FAERS Safety Report 25865916 (Version 1)
Quarter: 2025Q3

REPORT INFORMATION
  Report Type: Spontaneous
  Country: EU (occurrence: EU)
  Receive Date: 20250930
  Receipt Date: 20250930
  Transmission Date: 20251020
  Serious: Yes (Other)
  Sender: ASTELLAS
  Company Number: EU-ASTELLAS-2025-AER-052806

PATIENT
  Age: 61 Year
  Sex: Male

DRUGS (7)
  1. ENZALUTAMIDE [Suspect]
     Active Substance: ENZALUTAMIDE
     Indication: Prostate cancer
     Route: 065
     Dates: start: 202110, end: 202410
  2. ENZALUTAMIDE [Suspect]
     Active Substance: ENZALUTAMIDE
     Indication: Metastases to bone
  3. ENZALUTAMIDE [Suspect]
     Active Substance: ENZALUTAMIDE
     Indication: Metastases to lymph nodes
  4. LEUPROLIDE [Suspect]
     Active Substance: LEUPROLIDE
     Indication: Hormone therapy
     Dosage: 11.25 MG/ML
     Route: 065
     Dates: start: 202004
  5. DENOSUMAB [Concomitant]
     Active Substance: DENOSUMAB
     Indication: Prostate cancer
     Route: 065
     Dates: start: 202007
  6. DENOSUMAB [Concomitant]
     Active Substance: DENOSUMAB
     Indication: Metastases to bone
  7. DENOSUMAB [Concomitant]
     Active Substance: DENOSUMAB
     Indication: Metastases to lymph nodes

REACTIONS (1)
  - Hereditary optic atrophy [Recovering/Resolving]

NARRATIVE: CASE EVENT DATE: 20230801
